FAERS Safety Report 6555902-7 (Version None)
Quarter: 2010Q1

REPORT INFORMATION
  Report Type: 
  Country: None (occurrence: None)
  Receive Date: 20100125
  Receipt Date: 20100118
  Transmission Date: 20100710
  Serious: Yes (Hospitalization)
  Sender: FDA-Public Use
  Company Number: 2009SP037718

PATIENT
  Age: 71 Year
  Sex: Male
  Weight: 59 kg

DRUGS (8)
  1. TEMODAL [Suspect]
     Indication: ANAPLASTIC ASTROCYTOMA
     Dosage: 75 MG/M2;QD;PO
     Route: 048
     Dates: start: 20091009, end: 20091106
  2. DEPAKENE [Concomitant]
     Indication: EPILEPSY
     Dosage: 800 MG; PO
     Route: 048
     Dates: start: 20090902, end: 20091106
  3. RINDERON [Concomitant]
  4. TAKEPRON OD [Concomitant]
  5. LENDORMIN [Concomitant]
  6. PRIMPERAN TAB [Concomitant]
  7. BAKTAR [Concomitant]
  8. NASEA-OD [Concomitant]

REACTIONS (3)
  - ALANINE AMINOTRANSFERASE INCREASED [None]
  - BLOOD BILIRUBIN INCREASED [None]
  - HEPATIC FUNCTION ABNORMAL [None]
